FAERS Safety Report 23427889 (Version 1)
Quarter: 2024Q1

REPORT INFORMATION
  Report Type: Spontaneous
  Country: SA (occurrence: SA)
  Receive Date: 20240122
  Receipt Date: 20240122
  Transmission Date: 20240409
  Serious: Yes (Hospitalization, Other)
  Sender: FDA-Public Use
  Company Number: SA-EPICPHARMA-SA-2024EPCLIT00071

PATIENT
  Age: 49 Year
  Sex: Female

DRUGS (1)
  1. CEFTRIAXONE SODIUM [Suspect]
     Active Substance: CEFTRIAXONE SODIUM
     Indication: Pharyngitis
     Route: 042

REACTIONS (2)
  - Cutaneous vasculitis [Recovered/Resolved]
  - Product use in unapproved indication [Unknown]
